FAERS Safety Report 10768549 (Version 3)
Quarter: 2015Q1

REPORT INFORMATION
  Report Type: Spontaneous
  Country: US (occurrence: US)
  Receive Date: 20150206
  Receipt Date: 20150217
  Transmission Date: 20150721
  Serious: No
  Sender: FDA-Public Use
  Company Number: US-009507513-1502USA000771

PATIENT
  Sex: Female

DRUGS (2)
  1. NEXPLANON [Suspect]
     Active Substance: ETONOGESTREL
     Indication: CONTRACEPTION
     Dosage: 3 RODS (STRENGTH: 68MG)
     Route: 059
     Dates: start: 20150127, end: 201501
  2. NEXPLANON [Suspect]
     Active Substance: ETONOGESTREL
     Dosage: 2 RODS (STRENGTH: 68MG)
     Route: 059
     Dates: start: 20150127, end: 2015

REACTIONS (3)
  - Oedema peripheral [Unknown]
  - Overdose [Unknown]
  - Device difficult to use [Recovered/Resolved]

NARRATIVE: CASE EVENT DATE: 201501
